FAERS Safety Report 15526453 (Version 1)
Quarter: 2018Q4

REPORT INFORMATION
  Report Type: Report from Study
  Country: None (occurrence: FR)
  Receive Date: 20181018
  Receipt Date: 20181018
  Transmission Date: 20190205
  Serious: Yes (Other)
  Sender: FDA-Public Use
  Company Number: FR-ABBVIE-18S-056-2522758-00

PATIENT
  Age: 62 Year
  Sex: Male

DRUGS (1)
  1. DUODOPA [Suspect]
     Active Substance: CARBIDOPA\LEVODOPA
     Indication: PARKINSON^S DISEASE
     Dosage: MORNING  DOSE : 2 ML, NO EXTRA DOSE, CONTINOUS FLOW RATE DURING THE DAY: 2.2 ML/H
     Route: 050
     Dates: start: 20140919

REACTIONS (6)
  - Multiple fractures [Unknown]
  - Visual impairment [Unknown]
  - Dyskinesia [Unknown]
  - Fall [Unknown]
  - Stoma site inflammation [Unknown]
  - Deafness [Unknown]
